FAERS Safety Report 6864483-X (Version None)
Quarter: 2010Q3

REPORT INFORMATION
  Report Type: 
  Country: None (occurrence: None)
  Receive Date: 20100721
  Receipt Date: 20080326
  Transmission Date: 20110219
  Serious: No
  Sender: FDA-Public Use
  Company Number: US-PFIZER INC-2008028043

PATIENT
  Age: 59 Year
  Sex: Female

DRUGS (6)
  1. CHANTIX [Suspect]
     Indication: SMOKING CESSATION THERAPY
  2. CYMBALTA [Concomitant]
  3. ULTRAM [Concomitant]
  4. DILTIAZEM [Concomitant]
  5. HYDROCHLOROTHIAZIDE [Concomitant]
  6. VALTREX [Concomitant]

REACTIONS (2)
  - AMNESIA [None]
  - NIGHTMARE [None]
